FAERS Safety Report 8322041-4 (Version None)
Quarter: 2012Q2

REPORT INFORMATION
  Report Type: 
  Country: None (occurrence: None)
  Receive Date: 20120430
  Receipt Date: 20120420
  Transmission Date: 20120825
  Serious: Yes (Hospitalization)
  Sender: FDA-Public Use
  Company Number: US-VERTEX PHARMACEUTICALS INC.-AE-2012-005683

PATIENT
  Sex: Male
  Weight: 83.99 kg

DRUGS (4)
  1. METFORMIN HCL [Concomitant]
  2. PEGASYS [Concomitant]
     Indication: HEPATITIS C
     Route: 058
     Dates: start: 20120130, end: 20120402
  3. INCIVEK [Suspect]
     Indication: HEPATITIS C
     Route: 048
     Dates: start: 20120130, end: 20120402
  4. COPEGUS [Concomitant]
     Indication: HEPATITIS C
     Dates: start: 20120130, end: 20120402

REACTIONS (11)
  - RED BLOOD CELL COUNT DECREASED [None]
  - PANCREATIC DISORDER [None]
  - WHITE BLOOD CELL COUNT DECREASED [None]
  - FATIGUE [None]
  - NAUSEA [None]
  - ASTHENIA [None]
  - BLOOD GLUCOSE INCREASED [None]
  - JAUNDICE [None]
  - WEIGHT DECREASED [None]
  - CONFUSIONAL STATE [None]
  - VERTIGO [None]
